FAERS Safety Report 8982478 (Version 1)
Quarter: 2012Q4

REPORT INFORMATION
  Report Type: 
  Country: US (occurrence: US)
  Receive Date: 20121222
  Receipt Date: 20121222
  Transmission Date: 20130627
  Serious: No
  Sender: FDA-Public Use
  Company Number: US-ASTRAZENECA-2012SE88108

PATIENT
  Age: 789 Month
  Sex: Female
  Weight: 61.2 kg

DRUGS (9)
  1. FASLODEX [Suspect]
     Indication: BREAST CANCER
     Route: 030
     Dates: start: 201003, end: 201003
  2. FASLODEX [Suspect]
     Indication: BREAST CANCER
     Route: 030
     Dates: start: 201003, end: 2011
  3. FASLODEX [Suspect]
     Indication: BREAST CANCER
     Route: 030
     Dates: start: 2011, end: 2011
  4. FASLODEX [Suspect]
     Indication: BREAST CANCER
     Route: 030
  5. CRESTOR [Suspect]
     Indication: BLOOD CHOLESTEROL INCREASED
     Route: 048
  6. AMBIEN [Concomitant]
     Indication: INSOMNIA
     Route: 048
  7. TYLENOL ARTHRITIS [Concomitant]
     Indication: ARTHRITIS
     Dosage: THREE TIMES A ADY
     Route: 048
  8. TRAMADOL [Concomitant]
     Indication: ARTHRITIS
     Dosage: AS NEEDED
     Route: 048
  9. ARIMIDEX [Concomitant]
     Indication: BREAST CANCER
     Route: 048

REACTIONS (6)
  - Arthralgia [Recovered/Resolved]
  - Mobility decreased [Unknown]
  - Haematoma [Not Recovered/Not Resolved]
  - Injection site pain [Recovered/Resolved]
  - Injection site bruising [Unknown]
  - Incorrect drug administration rate [Unknown]
